FAERS Safety Report 10218837 (Version 1)
Quarter: 2014Q2

REPORT INFORMATION
  Report Type: Spontaneous
  Country: US (occurrence: US)
  Receive Date: 20140605
  Receipt Date: 20140605
  Transmission Date: 20141212
  Serious: No
  Sender: FDA-Public Use
  Company Number: US-BAYER-2014-078839

PATIENT
  Age: 62 Year
  Sex: Male
  Weight: 118 kg

DRUGS (5)
  1. ALEVE CAPLET [Suspect]
     Indication: ARTHRITIS
     Dosage: 2 DF, QD WITH FOOD
     Route: 048
     Dates: start: 2014
  2. BAYER ASPIRIN REGIMEN ADULT LOW STRENGTH [Suspect]
     Indication: TOOTHACHE
     Dosage: 1 DF, QD WITH FOOD
     Route: 048
     Dates: start: 2014
  3. BAYER ASPIRIN REGIMEN ADULT LOW STRENGTH [Suspect]
     Indication: ISCHAEMIC HEART DISEASE PROPHYLAXIS
  4. VITAMIN E [TOCOPHEROL] [Concomitant]
  5. VITAMIN C [ASCORBIC ACID] [Concomitant]

REACTIONS (2)
  - Incorrect drug administration duration [None]
  - Intentional product misuse [None]
